FAERS Safety Report 5157923-8 (Version None)
Quarter: 2006Q4

REPORT INFORMATION
  Report Type: 
  Country: None (occurrence: None)
  Receive Date: 20061116
  Receipt Date: 20061103
  Transmission Date: 20070319
  Serious: Yes (Other)
  Sender: FDA-Public Use
  Company Number: 2006136019

PATIENT
  Age: 52 Year
  Sex: Male
  Weight: 145.151 kg

DRUGS (15)
  1. LYRICA [Suspect]
     Indication: MIGRAINE
     Dosage: 250 MG (50 MG)
  2. ZANAFLEX [Concomitant]
  3. ACETAMINOPHEN W/ CODEINE [Concomitant]
  4. ZOLOFT [Concomitant]
  5. MENTAX                      (BUTENAFINE) [Concomitant]
  6. MORPHINE SULFATE [Concomitant]
  7. PRINIVIL [Concomitant]
  8. GLIMEPIRIDE [Concomitant]
  9. MONTELUKAST SODIUM (MONTELUKAST SODIUM) [Concomitant]
  10. BIAXIN [Concomitant]
  11. METRONIDAZOLE [Concomitant]
  12. ATIVAN [Concomitant]
  13. NEXIUM [Concomitant]
  14. BYETTA [Concomitant]
  15. INSULIN (INSULIN) [Concomitant]

REACTIONS (7)
  - DRUG DOSE OMISSION [None]
  - DRUG EFFECT DECREASED [None]
  - GRAND MAL CONVULSION [None]
  - INCORRECT DOSE ADMINISTERED [None]
  - NUCLEAR MAGNETIC RESONANCE IMAGING BRAIN ABNORMAL [None]
  - PETIT MAL EPILEPSY [None]
  - VERTIGO [None]
